FAERS Safety Report 16122685 (Version 1)
Quarter: 2019Q1

REPORT INFORMATION
  Report Type: Spontaneous
  Country: DE (occurrence: DE)
  Receive Date: 20190327
  Receipt Date: 20190327
  Transmission Date: 20190418
  Serious: Yes (Hospitalization, Other)
  Sender: FDA-Public Use
  Company Number: DE-SAKK-2019SA009987AA

PATIENT
  Age: 61 Year
  Sex: Female

DRUGS (7)
  1. LEMTRADA [Suspect]
     Active Substance: ALEMTUZUMAB
     Indication: MULTIPLE SCLEROSIS
     Dosage: UNK (3X12)
     Route: 041
     Dates: start: 20171004, end: 20171006
  2. SERTRALINE [Concomitant]
     Active Substance: SERTRALINE HYDROCHLORIDE
     Indication: DEPRESSION
     Dosage: 100 MG, 1X
     Route: 048
     Dates: start: 201711, end: 201811
  3. PREGABALIN. [Concomitant]
     Active Substance: PREGABALIN
     Indication: NEURALGIA
     Dosage: 75 MG (2 X 75 MG) (PERSISTING)
     Route: 048
     Dates: start: 201711
  4. INSULIN [Concomitant]
     Active Substance: INSULIN NOS
     Indication: DIABETES MELLITUS
  5. TRIMIPRAMINE [Concomitant]
     Active Substance: TRIMIPRAMINE
     Indication: DEPRESSION
     Dosage: 25 MG, 1X
     Route: 048
     Dates: start: 201901
  6. TRIMIPRAMINE [Concomitant]
     Active Substance: TRIMIPRAMINE
     Indication: SLEEP DISORDER
  7. LEMTRADA [Suspect]
     Active Substance: ALEMTUZUMAB
     Dosage: UNK
     Route: 041
     Dates: start: 2016, end: 2016

REACTIONS (20)
  - Vomiting [Unknown]
  - Insomnia [Unknown]
  - Somnolence [Unknown]
  - Emphysema [Unknown]
  - Cor pulmonale [Unknown]
  - Myalgia [Unknown]
  - Diarrhoea [Unknown]
  - Fatigue [Unknown]
  - Mood altered [Unknown]
  - Leukopenia [Unknown]
  - Pain [Unknown]
  - Asthenia [Unknown]
  - Ketoacidosis [Unknown]
  - Depression [Unknown]
  - Hyperthyroidism [Unknown]
  - Abdominal pain [Recovered/Resolved]
  - Basedow^s disease [Recovering/Resolving]
  - Muscular weakness [Unknown]
  - Weight decreased [Unknown]
  - Arthralgia [Unknown]

NARRATIVE: CASE EVENT DATE: 2018
